FAERS Safety Report 5018250-2 (Version None)
Quarter: 2006Q2

REPORT INFORMATION
  Report Type: 
  Country: None (occurrence: None)
  Receive Date: 20060530
  Receipt Date: 20060517
  Transmission Date: 20061013
  Serious: Yes (Hospitalization)
  Sender: FDA-Public Use
  Company Number: 2006065617

PATIENT
  Age: 38 Year
  Sex: 0

DRUGS (4)
  1. EPIRUBICIN [Suspect]
     Indication: BREAST CANCER FEMALE
     Dosage: (1 DAY EVERY 21 DAYS), INTRAVENOUS
     Route: 042
     Dates: start: 20050801, end: 20051114
  2. FLUOROIURACIL (FLUOROIURACIL) [Suspect]
     Indication: BREAST CANCER FEMALE
     Dosage: (1 DAY EVERY 21 DAYS), INTRAVENOUS
     Route: 042
     Dates: start: 20050801, end: 20051114
  3. CYCLOPHOSPHAMIDE [Suspect]
     Indication: BREAST CANCER FEMALE
     Dosage: (1 DAY EVERY 21 DAYS), INTRAVENOUS
     Route: 042
     Dates: start: 20050801, end: 20051114
  4. TRIPTORELIN (TRIPTORELIN) [Suspect]
     Indication: BREAST CANCER FEMALE
     Dates: start: 20050801

REACTIONS (2)
  - BREAST CANCER FEMALE [None]
  - FEBRILE NEUTROPENIA [None]
